FAERS Safety Report 8459995-1 (Version None)
Quarter: 2012Q2

REPORT INFORMATION
  Report Type: 
  Country: None (occurrence: None)
  Receive Date: 20120622
  Receipt Date: 20120620
  Transmission Date: 20120825
  Serious: Yes (Death, Other)
  Sender: FDA-Public Use
  Company Number: PHHY2012AU044406

PATIENT
  Sex: Male
  Weight: 53 kg

DRUGS (3)
  1. ZOLEDRONOC ACID [Suspect]
     Dosage: 5 MG, UNK
     Route: 042
     Dates: start: 20100513
  2. ZOLEDRONOC ACID [Suspect]
     Dosage: 5 MG, UNK
     Route: 042
     Dates: start: 20110531
  3. CALCIUM CARBONATE [Concomitant]
     Dosage: 1500 MG, UNK
     Route: 048
     Dates: start: 20100720, end: 20111006

REACTIONS (4)
  - LOSS OF CONSCIOUSNESS [None]
  - FALL [None]
  - CHEST DISCOMFORT [None]
  - MYOCARDIAL ISCHAEMIA [None]
